FAERS Safety Report 14388576 (Version 1)
Quarter: 2018Q1

REPORT INFORMATION
  Report Type: Spontaneous
  Country: US (occurrence: US)
  Receive Date: 20180115
  Receipt Date: 20180115
  Transmission Date: 20180509
  Serious: No
  Sender: FDA-Public Use
  Company Number: US-AMNEAL PHARMACEUTICALS-2017AMN00974

PATIENT
  Age: 53 Year
  Sex: Female
  Weight: 49.89 kg

DRUGS (1)
  1. DICLOFENAC SODIUM. [Suspect]
     Active Substance: DICLOFENAC SODIUM
     Indication: SYNOVITIS
     Dosage: UNK, 4X/DAY (LITTLE BIT OF ONE FINGER TIP)
     Route: 061
     Dates: start: 201706, end: 201708

REACTIONS (1)
  - Drug ineffective [Recovered/Resolved]

NARRATIVE: CASE EVENT DATE: 20170610
